FAERS Safety Report 7918063-5 (Version None)
Quarter: 2011Q4

REPORT INFORMATION
  Report Type: 
  Country: None (occurrence: None)
  Receive Date: 20111116
  Receipt Date: 20110804
  Transmission Date: 20120403
  Serious: No
  Sender: FDA-Public Use
  Company Number: US-BAYER-2011-071590

PATIENT
  Sex: Female
  Weight: 68 kg

DRUGS (4)
  1. ALEVE (CAPLET) [Suspect]
     Indication: BACK PAIN
     Dosage: 1 DF, BID
     Route: 048
     Dates: start: 20101201
  2. XANAX [Concomitant]
  3. KLONOPIN [Concomitant]
  4. NEFAZODONE HCL [Concomitant]

REACTIONS (1)
  - NO ADVERSE EVENT [None]
